FAERS Safety Report 24043173 (Version 7)
Quarter: 2024Q4

REPORT INFORMATION
  Report Type: Spontaneous
  Country: VE (occurrence: VE)
  Receive Date: 20240702
  Receipt Date: 20241023
  Transmission Date: 20250114
  Serious: Yes (Other)
  Sender: MERCK
  Company Number: VE-009507513-2403VEN008952

PATIENT
  Age: 56 Year
  Sex: Male
  Weight: 100 kg

DRUGS (11)
  1. KEYTRUDA [Suspect]
     Active Substance: PEMBROLIZUMAB
     Indication: Colorectal cancer metastatic
     Dosage: STRENGTH: 100 MG/4ML - 1ST CYCLE
     Route: 042
     Dates: start: 20231205, end: 20231205
  2. KEYTRUDA [Suspect]
     Active Substance: PEMBROLIZUMAB
     Dosage: STRENGTH: 100 MG/4ML
     Route: 042
  3. KEYTRUDA [Suspect]
     Active Substance: PEMBROLIZUMAB
     Dosage: STRENGTH: 100 MG/4ML
     Route: 042
     Dates: start: 20240108, end: 20240108
  4. KEYTRUDA [Suspect]
     Active Substance: PEMBROLIZUMAB
     Dosage: UNK
     Route: 042
     Dates: start: 2024, end: 2024
  5. KEYTRUDA [Suspect]
     Active Substance: PEMBROLIZUMAB
     Dosage: STRENGTH: 100 MG/4ML - 8TH CYCLE
     Route: 042
     Dates: start: 20240522, end: 20240522
  6. KEYTRUDA [Suspect]
     Active Substance: PEMBROLIZUMAB
     Dosage: 100 MG/4 ML
     Route: 042
     Dates: start: 20240801, end: 20240801
  7. KEYTRUDA [Suspect]
     Active Substance: PEMBROLIZUMAB
     Dosage: UNK
     Route: 042
     Dates: start: 20240821, end: 20240821
  8. KEYTRUDA [Suspect]
     Active Substance: PEMBROLIZUMAB
     Dosage: STRENGTH: 100 MG/4ML
     Route: 042
     Dates: start: 20240911, end: 20240911
  9. KEYTRUDA [Suspect]
     Active Substance: PEMBROLIZUMAB
     Dosage: UNK
     Route: 042
     Dates: start: 20241002, end: 20241002
  10. TAMSULOSIN [Concomitant]
     Active Substance: TAMSULOSIN
     Indication: Prostatomegaly
     Dosage: 0.4 MILLIGRAM, QD
     Route: 048
  11. TADALAFIL [Concomitant]
     Active Substance: TADALAFIL
     Indication: Prostatomegaly
     Dosage: 5 MILLIGRAM, QD
     Route: 048

REACTIONS (33)
  - Malignant neoplasm progression [Unknown]
  - Carcinoembryonic antigen increased [Unknown]
  - Cholecystitis [Unknown]
  - Aortic arteriosclerosis [Unknown]
  - Perihepatic discomfort [Unknown]
  - Anal fistula [Unknown]
  - Carbohydrate antigen 19-9 increased [Unknown]
  - Osteoarthritis [Unknown]
  - Tremor [Recovered/Resolved]
  - Confusional state [Recovered/Resolved]
  - Mental fatigue [Recovered/Resolved]
  - Hangover [Unknown]
  - Headache [Recovered/Resolved]
  - Dizziness [Recovering/Resolving]
  - Asthenia [Not Recovered/Not Resolved]
  - Chills [Recovered/Resolved]
  - Fatigue [Recovering/Resolving]
  - Hernial eventration [Unknown]
  - Carbohydrate antigen 72-4 increased [Unknown]
  - Liver function test abnormal [Unknown]
  - Suspected counterfeit product [Unknown]
  - Product availability issue [Unknown]
  - Insurance issue [Unknown]
  - Economic problem [Unknown]
  - Inappropriate schedule of product administration [Unknown]
  - Suspected counterfeit product [Unknown]
  - Inappropriate schedule of product administration [Unknown]
  - Inappropriate schedule of product administration [Unknown]
  - Fatigue [Unknown]
  - Product preparation issue [Unknown]
  - Spinal osteoarthritis [Unknown]
  - Fatigue [Unknown]
  - Platelet count decreased [Unknown]

NARRATIVE: CASE EVENT DATE: 20230101
